FAERS Safety Report 23275333 (Version 3)
Quarter: 2023Q4

REPORT INFORMATION
  Report Type: Report from Study
  Country: CN (occurrence: CN)
  Receive Date: 20231208
  Receipt Date: 20231218
  Transmission Date: 20240110
  Serious: Yes (Other)
  Sender: FDA-Public Use
  Company Number: CN-JNJFOC-20231184174

PATIENT

DRUGS (5)
  1. RISPERDAL [Suspect]
     Active Substance: RISPERIDONE
     Indication: Psychotic disorder due to a general medical condition
     Route: 065
  2. RISPERDAL [Suspect]
     Active Substance: RISPERIDONE
     Indication: Dissociative disorder
  3. RISPERDAL [Suspect]
     Active Substance: RISPERIDONE
     Indication: Schizophrenia
  4. RISPERDAL [Suspect]
     Active Substance: RISPERIDONE
     Indication: Mental disorder
  5. RISPERDAL [Suspect]
     Active Substance: RISPERIDONE
     Indication: Bipolar disorder

REACTIONS (25)
  - Arrhythmia [Unknown]
  - Tardive dyskinesia [Unknown]
  - Urinary retention [Unknown]
  - Akathisia [Unknown]
  - Tremor [Unknown]
  - Hypertonia [Unknown]
  - Musculoskeletal stiffness [Unknown]
  - Musculoskeletal stiffness [Unknown]
  - Language disorder [Unknown]
  - Vision blurred [Unknown]
  - Palpitations [Unknown]
  - Orthostatic hypotension [Unknown]
  - Constipation [Unknown]
  - Drooling [Unknown]
  - Hepatic function abnormal [Unknown]
  - Dysphagia [Unknown]
  - Metabolic disorder [Unknown]
  - Body mass index increased [Unknown]
  - Galactorrhoea [Unknown]
  - Menstrual disorder [Unknown]
  - Fatigue [Unknown]
  - Blood disorder [Unknown]
  - Off label use [Unknown]
  - Restlessness [Unknown]
  - Extrapyramidal disorder [Unknown]
